FAERS Safety Report 23245091 (Version 1)
Quarter: 2023Q4

REPORT INFORMATION
  Report Type: Spontaneous
  Country: US (occurrence: US)
  Receive Date: 20231130
  Receipt Date: 20231130
  Transmission Date: 20240109
  Serious: No
  Sender: FDA-Public Use
  Company Number: US-IBSA PHARMA INC.-2023IBS000656

PATIENT

DRUGS (4)
  1. TIROSINT [Suspect]
     Active Substance: LEVOTHYROXINE SODIUM
     Indication: Hypothyroidism
     Dosage: 50 MICROGRAM
     Route: 048
     Dates: start: 2022
  2. HYDROXYZINE [Suspect]
     Active Substance: HYDROXYZINE HYDROCHLORIDE
     Indication: Sleep disorder
     Dosage: 2.5 MILLIGRAM
     Route: 048
  3. GINKGO [Concomitant]
     Active Substance: GINKGO
     Indication: Mental disorder
     Dosage: 1.2 MILLIGRAM
     Route: 048
  4. AZELASTINE [Concomitant]
     Active Substance: AZELASTINE\AZELASTINE HYDROCHLORIDE
     Indication: Seasonal allergy
     Dosage: AS NEEDED

REACTIONS (1)
  - Dysgeusia [Unknown]

NARRATIVE: CASE EVENT DATE: 20230101
